FAERS Safety Report 20680226 (Version 1)
Quarter: 2022Q2

REPORT INFORMATION
  Report Type: Spontaneous
  Country: US (occurrence: None)
  Receive Date: 20220405
  Receipt Date: 20220405
  Transmission Date: 20220720
  Serious: No
  Sender: FDA-Public Use
  Company Number: None

PATIENT
  Age: 50 Year
  Sex: Male

DRUGS (1)
  1. RITUXAN [Suspect]
     Active Substance: RITUXIMAB
     Route: 041

REACTIONS (4)
  - Infusion related reaction [None]
  - Throat irritation [None]
  - Hypertension [None]
  - Respiratory rate increased [None]

NARRATIVE: CASE EVENT DATE: 20220404
